FAERS Safety Report 10935102 (Version 1)
Quarter: 2015Q1

REPORT INFORMATION
  Report Type: Spontaneous
  Country: CA (occurrence: CA)
  Receive Date: 20150320
  Receipt Date: 20150320
  Transmission Date: 20150721
  Serious: Yes (Other)
  Sender: FDA-Public Use
  Company Number: CA-APOTEX-2015AP005363

PATIENT
  Age: 52 Year
  Sex: Female

DRUGS (6)
  1. APO-CYCLOSPORINE ORAL SOLUTION [Suspect]
     Active Substance: CYCLOSPORINE
     Indication: AORTITIS
     Dosage: 100 MG, BID
     Route: 065
     Dates: end: 2012
  2. APO-CYCLOSPORINE ORAL SOLUTION [Suspect]
     Active Substance: CYCLOSPORINE
     Dosage: 25-50 MG
     Route: 065
     Dates: start: 201205
  3. INFLIXIMAB [Suspect]
     Active Substance: INFLIXIMAB
     Indication: IRITIS
     Dosage: EVERY 6 WEEKS
     Dates: start: 2011, end: 201204
  4. PREDNISONE. [Concomitant]
     Active Substance: PREDNISONE
     Indication: AORTITIS
     Dosage: 30 MG, BID
     Route: 065
  5. ADALIMUMAB [Concomitant]
     Active Substance: ADALIMUMAB
     Indication: PSORIATIC ARTHROPATHY
     Dosage: UNK, Q.O.WK.
     Dates: start: 201205
  6. ADALIMUMAB [Concomitant]
     Active Substance: ADALIMUMAB
     Indication: SPONDYLITIS

REACTIONS (5)
  - Spondylitis [Recovering/Resolving]
  - Nephropathy toxic [Unknown]
  - Psoriatic arthropathy [Recovering/Resolving]
  - Psoriasis [Recovering/Resolving]
  - Iritis [Recovering/Resolving]

NARRATIVE: CASE EVENT DATE: 2011
